FAERS Safety Report 4476286-4 (Version None)
Quarter: 2004Q3

REPORT INFORMATION
  Report Type: 
  Country: None (occurrence: None)
  Receive Date: 20040923
  Receipt Date: 20040719
  Transmission Date: 20050211
  Serious: No
  Sender: FDA-Public Use
  Company Number: USA040772949

PATIENT
  Age: 61 Year
  Sex: Female

DRUGS (3)
  1. FORTEO [Suspect]
     Indication: OSTEOPOROSIS
     Dates: start: 20040715
  2. EVISTA [Suspect]
     Indication: OSTEOPOROSIS
  3. FOSAMAX [Concomitant]

REACTIONS (1)
  - PAIN IN EXTREMITY [None]
